FAERS Safety Report 15170492 (Version 2)
Quarter: 2018Q3

REPORT INFORMATION
  Report Type: Spontaneous
  Country: US (occurrence: US)
  Receive Date: 20180720
  Receipt Date: 20180723
  Transmission Date: 20181010
  Serious: Yes (Hospitalization)
  Sender: FDA-Public Use
  Company Number: US-JNJFOC-20180714842

PATIENT
  Age: 41 Year
  Sex: Female

DRUGS (1)
  1. LISTERINE ORIGINAL [Suspect]
     Active Substance: EUCALYPTOL\MENTHOL\METHYL SALICYLATE\THYMOL
     Indication: PRODUCT USED FOR UNKNOWN INDICATION
     Route: 048

REACTIONS (12)
  - Incorrect route of drug administration [Unknown]
  - Vomiting [Recovering/Resolving]
  - Tremor [Recovering/Resolving]
  - Abdominal pain [Recovering/Resolving]
  - Decreased appetite [Recovering/Resolving]
  - Intentional product misuse [Unknown]
  - Toxicity to various agents [Recovering/Resolving]
  - Nausea [Recovering/Resolving]
  - Metabolic acidosis [Recovering/Resolving]
  - Abdominal distension [Recovering/Resolving]
  - Diarrhoea [Recovering/Resolving]
  - Abdominal tenderness [Recovering/Resolving]
